FAERS Safety Report 5589389-8 (Version None)
Quarter: 2008Q1

REPORT INFORMATION
  Report Type: 
  Country: None (occurrence: None)
  Receive Date: 20080109
  Receipt Date: 20071226
  Transmission Date: 20080703
  Serious: Yes (Life-Threatening, Hospitalization)
  Sender: FDA-Public Use
  Company Number: DSJ-2007-08946

PATIENT
  Age: 88 Year
  Sex: Female

DRUGS (9)
  1. OLMESARTAN MEDOXOMIL [Suspect]
     Indication: HYPERTENSION
     Dosage: 20 MG (20 MG, 1 IN 1 D), PER ORAL
     Route: 048
     Dates: start: 20070531, end: 20070920
  2. THYRADIN S (LEVOTHYROXINE SODIUM) (LEVOTHYROXINE SODIUM) [Concomitant]
  3. ATELEC (CILNIDIPINE) (CILNDIPINE) [Concomitant]
  4. ALFAROL (ALFACALCIDOL) (ALFACALCIDOL) [Concomitant]
  5. MERCAZOLE (THIAMAZOLE) (THIAMAZOLE) [Concomitant]
  6. NORVASC [Concomitant]
  7. FERROMIA (FERROUS CITRATE) (FERROUS CITRATE) [Concomitant]
  8. FOLIAMIN (FOLIC ACID) (FOLIC ACID) [Concomitant]
  9. METHYCOBAL (MECOBALAMIN) (MECOBALAMIN) [Concomitant]

REACTIONS (5)
  - BRADYCARDIA [None]
  - DIZZINESS [None]
  - ELECTROCARDIOGRAM T WAVE ABNORMAL [None]
  - HYPERKALAEMIA [None]
  - SHOCK [None]
